FAERS Safety Report 22118815 (Version 2)
Quarter: 2023Q2

REPORT INFORMATION
  Report Type: Spontaneous
  Country: US (occurrence: US)
  Receive Date: 20230321
  Receipt Date: 20230406
  Transmission Date: 20230721
  Serious: Yes (Hospitalization, Other)
  Sender: FDA-Public Use
  Company Number: US-MLMSERVICE-20230309-4155702-MLMSERVICE-20230309-4155702-1

PATIENT
  Age: 71 Year
  Sex: Female

DRUGS (2)
  1. FLECAINIDE [Suspect]
     Active Substance: FLECAINIDE
     Indication: Atrial fibrillation
     Dosage: 50 MILLIGRAM, TWO TIMES A DAY
     Route: 065
  2. FLECAINIDE [Suspect]
     Active Substance: FLECAINIDE
     Dosage: 100 MILLIGRAM, TWO TIMES A DAY
     Route: 065

REACTIONS (1)
  - Atrial flutter [Recovered/Resolved]
